FAERS Safety Report 19715610 (Version 1)
Quarter: 2021Q3

REPORT INFORMATION
  Report Type: Spontaneous
  Country: MX (occurrence: MX)
  Receive Date: 20210818
  Receipt Date: 20210818
  Transmission Date: 20211014
  Serious: Yes (Other)
  Sender: FDA-Public Use
  Company Number: MX-ABBVIE-21K-107-4039869-00

PATIENT
  Age: 73 Year
  Sex: Male

DRUGS (5)
  1. VENCLEXTA [Suspect]
     Active Substance: VENETOCLAX
     Indication: ACUTE MYELOID LEUKAEMIA
     Dosage: 7 TABLETS
     Route: 048
     Dates: start: 20210526, end: 2021
  2. CITARABIN [Concomitant]
     Active Substance: CYTARABINE
     Indication: ACUTE MYELOID LEUKAEMIA
  3. VENCLEXTA [Suspect]
     Active Substance: VENETOCLAX
     Dosage: 21 CAPSULES
     Route: 048
     Dates: start: 2021
  4. AZACITIDINE. [Concomitant]
     Active Substance: AZACITIDINE
     Indication: PRODUCT USED FOR UNKNOWN INDICATION
  5. VORICONAZOLE. [Concomitant]
     Active Substance: VORICONAZOLE
     Indication: PRODUCT USED FOR UNKNOWN INDICATION

REACTIONS (15)
  - Neutropenia [Unknown]
  - Aspiration [Unknown]
  - Prostatic disorder [Unknown]
  - Fall [Unknown]
  - Splenic infarction [Unknown]
  - Costal cartilage fracture [Unknown]
  - Tachycardia [Unknown]
  - Somnolence [Unknown]
  - Splenic lesion [Unknown]
  - Tachypnoea [Unknown]
  - Agitation [Unknown]
  - Pyrexia [Unknown]
  - Hypertension [Unknown]
  - Hepatic lesion [Unknown]
  - Abdominal pain [Unknown]

NARRATIVE: CASE EVENT DATE: 20210526
